FAERS Safety Report 21046974 (Version 1)
Quarter: 2022Q3

REPORT INFORMATION
  Report Type: Spontaneous
  Country: US (occurrence: US)
  Receive Date: 20220706
  Receipt Date: 20220706
  Transmission Date: 20221027
  Serious: Yes (Other)
  Sender: FDA-Public Use
  Company Number: US-AVET LIFESCIENCES LTD-2022-AVET-000114

PATIENT
  Age: 31 Year
  Sex: Male

DRUGS (4)
  1. PROPOFOL [Interacting]
     Active Substance: PROPOFOL
     Indication: Anaesthesia
     Dosage: 200 MILLIGRAM
  2. OMEPRAZOLE [Concomitant]
     Active Substance: OMEPRAZOLE
     Dosage: UNK
  3. ONDANSETRON [Concomitant]
     Active Substance: ONDANSETRON
     Dosage: UNK
  4. MIDAZOLAM [Concomitant]
     Active Substance: MIDAZOLAM
     Indication: Anaesthesia
     Dosage: 2 MILLIGRAM

REACTIONS (2)
  - Drug interaction [Unknown]
  - Salivary hypersecretion [Unknown]
